FAERS Safety Report 14099169 (Version 1)
Quarter: 2017Q4

REPORT INFORMATION
  Report Type: Spontaneous
  Country: US (occurrence: US)
  Receive Date: 20171017
  Receipt Date: 20171017
  Transmission Date: 20180321
  Serious: No
  Sender: FDA-Public Use
  Company Number: US-MYLANLABS-2017M1056225

PATIENT
  Age: 63 Year
  Sex: Female

DRUGS (1)
  1. ESTRADIOL TRANSDERMAL SYSTEM [Suspect]
     Active Substance: ESTRADIOL
     Indication: HORMONE REPLACEMENT THERAPY
     Dosage: 0.1 MG, QD (TWICE WEEKLY)
     Route: 062

REACTIONS (2)
  - Application site burn [Recovered/Resolved]
  - Application site pruritus [Recovered/Resolved]

NARRATIVE: CASE EVENT DATE: 20170830
